FAERS Safety Report 10608305 (Version 1)
Quarter: 2014Q4

REPORT INFORMATION
  Report Type: Report from Study
  Country: US (occurrence: US)
  Receive Date: 20141125
  Receipt Date: 20141125
  Transmission Date: 20150529
  Serious: Yes (Hospitalization)
  Sender: FDA-Public Use
  Company Number: US-SA-2014SA158795

PATIENT
  Age: 66 Year
  Sex: Female

DRUGS (1)
  1. AUBAGIO [Suspect]
     Active Substance: TERIFLUNOMIDE
     Indication: MULTIPLE SCLEROSIS
     Route: 048
     Dates: start: 20141105, end: 20141112

REACTIONS (6)
  - Decreased appetite [Unknown]
  - Hepatic enzyme abnormal [Unknown]
  - Nausea [Unknown]
  - Tremor [Unknown]
  - Somnolence [Unknown]
  - Unevaluable event [Unknown]

NARRATIVE: CASE EVENT DATE: 201411
